FAERS Safety Report 25288329 (Version 2)
Quarter: 2025Q3

REPORT INFORMATION
  Report Type: Report from Study
  Country: US (occurrence: US)
  Receive Date: 20250509
  Receipt Date: 20250803
  Transmission Date: 20251021
  Serious: Yes (Other)
  Sender: ALEXION PHARMACEUTICALS
  Company Number: 202505USA004656US

PATIENT
  Age: 3 Year
  Sex: Male

DRUGS (1)
  1. STRENSIQ [Suspect]
     Active Substance: ASFOTASE ALFA
     Indication: Phosphorus metabolism disorder
     Dosage: 34 MILLIGRAM, TIW
     Route: 065

REACTIONS (10)
  - Ankle deformity [Unknown]
  - Bone deformity [Unknown]
  - Knee deformity [Unknown]
  - Extraskeletal ossification [Unknown]
  - Skin disorder [Unknown]
  - Hypotonia [Unknown]
  - Blood iron decreased [Unknown]
  - Transferrin saturation decreased [Unknown]
  - Haematocrit decreased [Unknown]
  - Mean cell haemoglobin concentration decreased [Unknown]

NARRATIVE: CASE EVENT DATE: 20230623
